FAERS Safety Report 12660798 (Version 2)
Quarter: 2016Q3

REPORT INFORMATION
  Report Type: Spontaneous
  Country: US (occurrence: US)
  Receive Date: 20160817
  Receipt Date: 20160901
  Transmission Date: 20161109
  Serious: No
  Sender: FDA-Public Use
  Company Number: US-RELYPSA-RLY2016001171

PATIENT
  Age: 52 Year
  Sex: Female

DRUGS (5)
  1. UNSPECIFIED THYROID MEDICATION [Concomitant]
     Active Substance: UNSPECIFIED INGREDIENT
  2. RENVELA [Concomitant]
     Active Substance: SEVELAMER CARBONATE
     Indication: DIALYSIS
  3. SIMVASTATIN. [Concomitant]
     Active Substance: SIMVASTATIN
     Indication: BLOOD CHOLESTEROL
  4. PHOSLO [Concomitant]
     Active Substance: CALCIUM ACETATE
     Indication: DIALYSIS
  5. VELTASSA [Suspect]
     Active Substance: PATIROMER
     Indication: HYPERKALAEMIA
     Dosage: 8.4 G, 3X A WEEK
     Route: 048
     Dates: start: 20160618, end: 20160620

REACTIONS (1)
  - Abdominal pain upper [Recovered/Resolved]
